FAERS Safety Report 8784289 (Version 1)
Quarter: 2012Q4

REPORT INFORMATION
  Report Type: Spontaneous
  Country: ES (occurrence: None)
  Receive Date: 20120830
  Receipt Date: 20120830
  Transmission Date: 20130627
  Serious: Yes (Hospitalization, Other)
  Sender: FDA-Public Use
  Company Number: 2012P1054501

PATIENT
  Age: 60 Year
  Sex: Female
  Weight: 55.34 kg

DRUGS (3)
  1. METRONIDAZOLE [Suspect]
     Indication: DRUG TOLERANCE
  2. ADRENALINE [Suspect]
     Indication: ANAPHYLAXIS
     Route: 030
  3. SIMVASTATIN [Concomitant]

REACTIONS (9)
  - Anaphylactic reaction [None]
  - Tachycardia [None]
  - Headache [None]
  - Subarachnoid haemorrhage [None]
  - Intracranial aneurysm [None]
  - Vision blurred [None]
  - Hemianopia [None]
  - Ischaemic stroke [None]
  - Cerebral vasoconstriction [None]
